FAERS Safety Report 17074618 (Version 1)
Quarter: 2019Q4

REPORT INFORMATION
  Report Type: Spontaneous
  Country: US (occurrence: US)
  Receive Date: 20191028
  Receipt Date: 20191028
  Transmission Date: 20200122
  Serious: No
  Sender: FDA-Public Use
  Company Number: None

PATIENT
  Age: 61 Year
  Sex: Male

DRUGS (1)
  1. ENTYVIO [Suspect]
     Active Substance: VEDOLIZUMAB
     Indication: PRODUCT USED FOR UNKNOWN INDICATION
     Dosage: ?          OTHER FREQUENCY:EVERY 8 WEEKS;?
     Route: 042
     Dates: start: 20170117

REACTIONS (9)
  - Tremor [None]
  - Feeling cold [None]
  - Vomiting [None]
  - Headache [None]
  - Nausea [None]
  - Yellow skin [None]
  - Diplopia [None]
  - Feeling abnormal [None]
  - Ocular icterus [None]

NARRATIVE: CASE EVENT DATE: 20191023
